FAERS Safety Report 23639931 (Version 13)
Quarter: 2025Q2

REPORT INFORMATION
  Report Type: Spontaneous
  Country: US (occurrence: US)
  Receive Date: 20240316
  Receipt Date: 20250508
  Transmission Date: 20250716
  Serious: No
  Sender: IPSEN BIOPHARMACEUTICALS, INC.
  Company Number: US-IPSEN Group, Research and Development-2024-03714

PATIENT
  Age: 82 Year
  Sex: Female
  Weight: 70 kg

DRUGS (42)
  1. TAZVERIK [Suspect]
     Active Substance: TAZEMETOSTAT HYDROBROMIDE
     Indication: Follicular lymphoma
     Dosage: (1600 MG) TWICE PER DAY
     Route: 048
     Dates: start: 20240226
  2. TAZVERIK [Suspect]
     Active Substance: TAZEMETOSTAT HYDROBROMIDE
     Route: 048
  3. TAZVERIK [Suspect]
     Active Substance: TAZEMETOSTAT HYDROBROMIDE
     Dosage: 800 MG TABLETS ONCE DAILY IN THE EVENING
     Route: 048
     Dates: start: 20241227
  4. ACETAMINOPHEN\CODEINE PHOSPHATE [Concomitant]
     Active Substance: ACETAMINOPHEN\CODEINE PHOSPHATE
  5. ACYCLOVIR [Concomitant]
     Active Substance: ACYCLOVIR
  6. ADVAIR HFA [Concomitant]
     Active Substance: FLUTICASONE PROPIONATE\SALMETEROL XINAFOATE
  7. ALLOPURINOL [Concomitant]
     Active Substance: ALLOPURINOL
  8. AMITRIPTYLINE [Concomitant]
     Active Substance: AMITRIPTYLINE
  9. ASPIRIN [Concomitant]
     Active Substance: ASPIRIN
  10. ATORVASTATIN CALCIUM [Concomitant]
     Active Substance: ATORVASTATIN CALCIUM
  11. FLOVENT [Concomitant]
     Active Substance: FLUTICASONE PROPIONATE
  12. HYDROXYZINE [Concomitant]
     Active Substance: HYDROXYZINE HYDROCHLORIDE
  13. IPRATROPIUM BROMIDE [Concomitant]
     Active Substance: IPRATROPIUM BROMIDE
  14. LANTUS [Concomitant]
     Active Substance: INSULIN GLARGINE
     Route: 058
  15. LEVALBUTEROL [Concomitant]
     Active Substance: LEVALBUTEROL
     Route: 050
  16. METFORMIN [Concomitant]
     Active Substance: METFORMIN HYDROCHLORIDE
  17. METOPROLOL SUCCINATE [Concomitant]
     Active Substance: METOPROLOL SUCCINATE
  18. NOVOLOG [Concomitant]
     Active Substance: INSULIN ASPART
  19. OLOPTADINE [Concomitant]
  20. OMEPRAZOLE [Concomitant]
     Active Substance: OMEPRAZOLE
  21. PREGABALIN [Concomitant]
     Active Substance: PREGABALIN
  22. PROCHLORPERAZINE MALEATE [Concomitant]
     Active Substance: PROCHLORPERAZINE MALEATE
  23. REFRESH PLUS [Concomitant]
     Active Substance: CARBOXYMETHYLCELLULOSE SODIUM
  24. VITAMIN B12 [Concomitant]
     Active Substance: CYANOCOBALAMIN
  25. SPIRIVA [Concomitant]
     Active Substance: TIOTROPIUM BROMIDE MONOHYDRATE
  26. STIOLTO RESPIMAT [Concomitant]
     Active Substance: OLODATEROL HYDROCHLORIDE\TIOTROPIUM BROMIDE MONOHYDRATE
  27. SYNTHROID [Concomitant]
     Active Substance: LEVOTHYROXINE SODIUM
  28. TELMISARTAN [Concomitant]
     Active Substance: TELMISARTAN
  29. VITAMIN D3 [Concomitant]
     Active Substance: CHOLECALCIFEROL
  30. ZOFRAN [Concomitant]
     Active Substance: ONDANSETRON HYDROCHLORIDE
  31. ZOLPIDEM TARTRATE [Concomitant]
     Active Substance: ZOLPIDEM TARTRATE
  32. FUROSEMIDE [Concomitant]
     Active Substance: FUROSEMIDE
  33. METAMUCIL [Concomitant]
     Active Substance: PLANTAGO SEED
  34. CYANOCOBALAMIN [Concomitant]
     Active Substance: CYANOCOBALAMIN
  35. IMODIUM [Concomitant]
     Active Substance: LOPERAMIDE HYDROCHLORIDE
  36. INSULIN NOS [Concomitant]
     Active Substance: INSULIN NOS
  37. DIPHENHYDRAMINE [Concomitant]
     Active Substance: DIPHENHYDRAMINE
  38. TRAZODONE [Concomitant]
     Active Substance: TRAZODONE HYDROCHLORIDE
  39. BIOTENE NOS [Concomitant]
     Active Substance: UNSPECIFIED INGREDIENT
  40. HYLANDS RESTLESS LEG SYNDROME [Concomitant]
  41. RETACRIT [Concomitant]
     Active Substance: EPOETIN ALFA-EPBX
  42. TUMS [Concomitant]
     Active Substance: CALCIUM CARBONATE

REACTIONS (26)
  - Constipation [Recovering/Resolving]
  - Fatigue [Not Recovered/Not Resolved]
  - Migraine [Recovering/Resolving]
  - Headache [Not Recovered/Not Resolved]
  - Muscle spasms [Not Recovered/Not Resolved]
  - Blood glucose increased [Not Recovered/Not Resolved]
  - Blood creatine increased [Not Recovered/Not Resolved]
  - Hypocalcaemia [Not Recovered/Not Resolved]
  - COVID-19 [Recovered/Resolved]
  - Nausea [Not Recovered/Not Resolved]
  - Anaemia [Not Recovered/Not Resolved]
  - Abdominal pain upper [Unknown]
  - Abdominal pain [Unknown]
  - Abdominal distension [Not Recovered/Not Resolved]
  - Breast pain [Unknown]
  - Red blood cell count decreased [Not Recovered/Not Resolved]
  - Haemoglobin decreased [Unknown]
  - Fatigue [Recovering/Resolving]
  - Weight increased [Not Recovered/Not Resolved]
  - Taste disorder [Not Recovered/Not Resolved]
  - Blood creatinine increased [Not Recovered/Not Resolved]
  - Muscle spasms [Not Recovered/Not Resolved]
  - Dry mouth [Recovered/Resolved]
  - Hypotension [Recovered/Resolved]
  - Asthenia [Not Recovered/Not Resolved]
  - Peripheral swelling [Not Recovered/Not Resolved]

NARRATIVE: CASE EVENT DATE: 20240226
